FAERS Safety Report 16145556 (Version 1)
Quarter: 2019Q2

REPORT INFORMATION
  Report Type: Report from Study
  Country: CO (occurrence: CO)
  Receive Date: 20190402
  Receipt Date: 20190402
  Transmission Date: 20190711
  Serious: Yes (Other)
  Sender: FDA-Public Use
  Company Number: CO-ACTELION-A-CH2019-188562

PATIENT
  Age: 69 Year
  Sex: Female
  Weight: 75 kg

DRUGS (1)
  1. OPSUMIT [Suspect]
     Active Substance: MACITENTAN
     Indication: PULMONARY ARTERIAL HYPERTENSION
     Dosage: 10 MG, QD
     Route: 048
     Dates: start: 20180930

REACTIONS (2)
  - Arrhythmia [Recovering/Resolving]
  - Syncope [Not Recovered/Not Resolved]

NARRATIVE: CASE EVENT DATE: 201903
